FAERS Safety Report 23957182 (Version 1)
Quarter: 2024Q2

REPORT INFORMATION
  Report Type: Spontaneous
  Country: US (occurrence: None)
  Receive Date: 20240607
  Receipt Date: 20240607
  Transmission Date: 20240716
  Serious: Yes (Hospitalization, Disabling)
  Sender: FDA-Public Use
  Company Number: None

PATIENT
  Age: 41 Year
  Sex: Male

DRUGS (5)
  1. CIPROFLOXACIN [Suspect]
     Active Substance: CIPROFLOXACIN
     Indication: Epididymitis
     Dates: start: 20240229, end: 20240303
  2. ZIO PATCH [Concomitant]
  3. VITAMINS [Concomitant]
     Active Substance: VITAMINS
  4. COD LIVER OIL [Concomitant]
     Active Substance: COD LIVER OIL
  5. COENZYME Q10 [Concomitant]
     Active Substance: DIETARY SUPPLEMENT\UBIDECARENONE

REACTIONS (2)
  - Paraesthesia [None]
  - Tendonitis [None]

NARRATIVE: CASE EVENT DATE: 20240304
